FAERS Safety Report 4690108-8 (Version None)
Quarter: 2005Q2

REPORT INFORMATION
  Report Type: 
  Country: None (occurrence: None)
  Receive Date: 20050613
  Receipt Date: 20050603
  Transmission Date: 20051028
  Serious: Yes (Life-Threatening, Other)
  Sender: FDA-Public Use
  Company Number: HQWYE215703JUN05

PATIENT
  Age: 52 Year
  Sex: Female

DRUGS (5)
  1. EUPANTOL (PANTOPRAZOLE, INJECTION) [Suspect]
     Dosage: ^SOME TIME (S) SOME DF^ INTRAVENOUS
     Route: 042
     Dates: start: 20050303, end: 20050324
  2. CIFLOX (CIPROFLOXACIN,) [Suspect]
     Dosage: 200 MG/100ML ^SOME TIME (S) SOME DF^ INTRAVENOUS
     Route: 042
     Dates: start: 20050203, end: 20050315
  3. DIGOXIN [Suspect]
     Indication: CARDIAC FAILURE
     Dosage: 0.25 MG ^SOME TIME(S) SOME DF^ ORAL
     Route: 048
     Dates: start: 20050322, end: 20050324
  4. TAZOCILLINE (PIPERACILLIN/TAZOBACTAM, INJECTION) [Suspect]
     Dosage: 2 G/250 MG ^SOME TIME (S) SOME DF^INTRAVENOUS
     Route: 042
     Dates: start: 20050302, end: 20050315
  5. ULTIVA [Suspect]
     Dosage: ^SOME TIME (S) SOME DF^ INTRAVENOUS
     Route: 042
     Dates: start: 20050316, end: 20050325

REACTIONS (1)
  - AGRANULOCYTOSIS [None]
